FAERS Safety Report 25868647 (Version 1)
Quarter: 2025Q4

REPORT INFORMATION
  Report Type: Spontaneous
  Country: US (occurrence: US)
  Receive Date: 20251001
  Receipt Date: 20251001
  Transmission Date: 20260119
  Serious: Yes (Hospitalization, Other)
  Sender: RECKITT BENCKISER
  Company Number: US-INDIVIOR US-INDV-150031-2024

PATIENT

DRUGS (7)
  1. SUBOXONE [Suspect]
     Active Substance: BUPRENORPHINE HYDROCHLORIDE\NALOXONE HYDROCHLORIDE
     Indication: Drug use disorder
     Dosage: 8 MILLIGRAM, UNKNOWN
     Route: 065
     Dates: start: 201703
  2. SUBOXONE [Suspect]
     Active Substance: BUPRENORPHINE HYDROCHLORIDE\NALOXONE HYDROCHLORIDE
     Indication: Drug use disorder
     Dosage: 4 MILLIGRAM, UNKNOWN
     Route: 065
     Dates: start: 201710
  3. SUBOXONE [Suspect]
     Active Substance: BUPRENORPHINE HYDROCHLORIDE\NALOXONE HYDROCHLORIDE
     Indication: Drug use disorder
     Dosage: 2 MILLIGRAM, UNKNOWN
     Route: 065
     Dates: start: 201706
  4. BUPRENORPHINE [Suspect]
     Active Substance: BUPRENORPHINE
     Indication: Drug use disorder
     Dosage: ONE AND HALF TABLETS OF 8 MILLIGRAMS DAILY
     Route: 060
     Dates: start: 202007, end: 202310
  5. BUPRENORPHINE [Suspect]
     Active Substance: BUPRENORPHINE
     Dosage: 8 MILLIGRAM, TID
     Route: 060
     Dates: start: 202310
  6. GABAPENTIN [Suspect]
     Active Substance: GABAPENTIN
     Indication: Product used for unknown indication
     Dosage: 100 MILLIGRAM, QID
     Route: 048
     Dates: start: 202310
  7. SEROQUEL [Suspect]
     Active Substance: QUETIAPINE FUMARATE
     Indication: Product used for unknown indication
     Dosage: 25 MILLIGRAM, HS
     Route: 048
     Dates: start: 202310

REACTIONS (9)
  - Neck injury [Unknown]
  - Breath odour [Unknown]
  - Gingival bleeding [Unknown]
  - Dental caries [Not Recovered/Not Resolved]
  - Tooth erosion [Not Recovered/Not Resolved]
  - Tooth fracture [Unknown]
  - Tooth loss [Unknown]
  - Loose tooth [Unknown]
  - Hyperaesthesia teeth [Unknown]

NARRATIVE: CASE EVENT DATE: 20230101
